FAERS Safety Report 4511632-4 (Version None)
Quarter: 2004Q4

REPORT INFORMATION
  Report Type: 
  Country: None (occurrence: None)
  Receive Date: 20041129
  Receipt Date: 20041020
  Transmission Date: 20050328
  Serious: No
  Sender: FDA-Public Use
  Company Number: US-BRISTOL-MYERS SQUIBB COMPANY-12739264

PATIENT
  Age: 80 Year
  Sex: Female

DRUGS (4)
  1. ABILIFY [Suspect]
     Dosage: INITIATED AT 10 MG/DAY
     Route: 048
  2. HALDOL [Concomitant]
  3. PROZAC [Concomitant]
  4. ARTANE [Concomitant]

REACTIONS (1)
  - MORBID THOUGHTS [None]
